FAERS Safety Report 18155764 (Version 1)
Quarter: 2020Q3

REPORT INFORMATION
  Report Type: Spontaneous
  Country: US (occurrence: US)
  Receive Date: 20200814
  Receipt Date: 20200814
  Transmission Date: 20201103
  Serious: Yes (Life-Threatening)
  Sender: FDA-Public Use
  Company Number: None

PATIENT

DRUGS (1)
  1. BLUMEN ADVANCED HAND SANITIZER [Suspect]
     Active Substance: ALCOHOL
     Dates: end: 20200723

REACTIONS (15)
  - Eye irritation [None]
  - Haematochezia [None]
  - Decreased appetite [None]
  - Abdominal pain [None]
  - Fatigue [None]
  - Product quality issue [None]
  - Pyrexia [None]
  - Recalled product administered [None]
  - Cough [None]
  - Myalgia [None]
  - Asthenia [None]
  - Vomiting [None]
  - Headache [None]
  - Nausea [None]
  - Bone pain [None]

NARRATIVE: CASE EVENT DATE: 20200725
